FAERS Safety Report 11515878 (Version 1)
Quarter: 2015Q3

REPORT INFORMATION
  Report Type: Spontaneous
  Country: US (occurrence: US)
  Receive Date: 20150916
  Receipt Date: 20150916
  Transmission Date: 20151125
  Serious: Yes (Other)
  Sender: FDA-Public Use
  Company Number: US-TAKEDA-2013TUS002027

PATIENT

DRUGS (6)
  1. METFORMIN [Concomitant]
     Active Substance: METFORMIN HYDROCHLORIDE
     Dosage: UNK
  2. JANUVIA [Concomitant]
     Active Substance: SITAGLIPTIN PHOSPHATE
     Dosage: 100 MG, UNK
     Dates: start: 20090820, end: 20101204
  3. ACTOS [Suspect]
     Active Substance: PIOGLITAZONE HYDROCHLORIDE
     Dosage: 15 MG, UNK
     Dates: start: 201105, end: 201112
  4. ACTOS [Suspect]
     Active Substance: PIOGLITAZONE HYDROCHLORIDE
     Dosage: 15 MG, UNK
     Dates: start: 201104, end: 201105
  5. AMARYL [Concomitant]
     Active Substance: GLIMEPIRIDE
     Dosage: 4 MG, UNK
     Dates: start: 20090910, end: 20130531
  6. ACTOS [Suspect]
     Active Substance: PIOGLITAZONE HYDROCHLORIDE
     Indication: TYPE 2 DIABETES MELLITUS
     Dosage: 15 MG, UNK
     Dates: start: 20101109, end: 201103

REACTIONS (11)
  - Balance disorder [Unknown]
  - Insomnia [Unknown]
  - Headache [Unknown]
  - Anxiety [Unknown]
  - Fatigue [Unknown]
  - Gait disturbance [Unknown]
  - Amnesia [Unknown]
  - Depression [Unknown]
  - Tremor [Unknown]
  - Tinnitus [Unknown]
  - Bladder cancer [Unknown]

NARRATIVE: CASE EVENT DATE: 201211
